FAERS Safety Report 23327542 (Version 1)
Quarter: 2023Q4

REPORT INFORMATION
  Report Type: Spontaneous
  Country: FR (occurrence: FR)
  Receive Date: 20231221
  Receipt Date: 20231221
  Transmission Date: 20240109
  Serious: Yes (Death, Hospitalization)
  Sender: FDA-Public Use
  Company Number: FR-AFSSAPS-BR2023000777

PATIENT
  Age: 72 Year
  Sex: Female
  Weight: 62 kg

DRUGS (4)
  1. IRINOTECAN [Suspect]
     Active Substance: IRINOTECAN
     Indication: Colorectal adenocarcinoma
     Dosage: 250 MILLIGRAM, IN TOTAL
     Route: 040
     Dates: start: 20230817, end: 20230817
  2. OXALIPLATIN [Suspect]
     Active Substance: OXALIPLATIN
     Indication: Colorectal adenocarcinoma
     Dosage: 150 MILLIGRAM, IN TOTAL
     Route: 040
     Dates: start: 20230817, end: 20230817
  3. FLUOROURACIL [Suspect]
     Active Substance: FLUOROURACIL
     Indication: Colorectal adenocarcinoma
     Dosage: 4200 MILLIGRAM, IN TOTAL
     Route: 040
     Dates: start: 20230817, end: 20230819
  4. FLUOROURACIL [Suspect]
     Active Substance: FLUOROURACIL
     Indication: Colorectal adenocarcinoma
     Dosage: 550 MILLIGRAM, TOTAL
     Route: 040
     Dates: start: 20230817, end: 20230817

REACTIONS (2)
  - Ischaemic stroke [Fatal]
  - Toxic cardiomyopathy [Fatal]

NARRATIVE: CASE EVENT DATE: 20230819
